FAERS Safety Report 5735307-9 (Version None)
Quarter: 2008Q2

REPORT INFORMATION
  Report Type: 
  Country: None (occurrence: None)
  Receive Date: 20080512
  Receipt Date: 20080507
  Transmission Date: 20081010
  Serious: Yes (Hospitalization, Disabling)
  Sender: FDA-Public Use
  Company Number: BR-BRISTOL-MYERS SQUIBB COMPANY-14184659

PATIENT
  Age: 8 Year
  Sex: Male

DRUGS (3)
  1. AMPHOTERICIN B [Suspect]
     Indication: MENINGITIS
  2. MANNITOL [Concomitant]
  3. DEXAMETHASONE [Concomitant]
     Route: 042

REACTIONS (1)
  - OPTIC ATROPHY [None]
